FAERS Safety Report 14998326 (Version 1)
Quarter: 2018Q2

REPORT INFORMATION
  Report Type: Spontaneous
  Country: US (occurrence: US)
  Receive Date: 20180520
  Receipt Date: 20180520
  Transmission Date: 20180711
  Serious: No
  Sender: FDA-Public Use
  Company Number: None

PATIENT
  Age: 36 Year
  Sex: Female
  Weight: 74.39 kg

DRUGS (5)
  1. PROBIOTICS [Concomitant]
     Active Substance: PROBIOTICS NOS
  2. VITAMIN B12 [Concomitant]
     Active Substance: CYANOCOBALAMIN
  3. VITAMIN D [Concomitant]
     Active Substance: CHOLECALCIFEROL
  4. MIRENA [Suspect]
     Active Substance: LEVONORGESTREL
     Dates: start: 20180105
  5. SYNTHROID [Concomitant]
     Active Substance: LEVOTHYROXINE SODIUM

REACTIONS (3)
  - Ovarian cyst [None]
  - Headache [None]
  - Breast tenderness [None]

NARRATIVE: CASE EVENT DATE: 20180105
